FAERS Safety Report 22094612 (Version 1)
Quarter: 2023Q1

REPORT INFORMATION
  Report Type: Spontaneous
  Country: TR (occurrence: TR)
  Receive Date: 20230314
  Receipt Date: 20230314
  Transmission Date: 20230418
  Serious: Yes (Hospitalization)
  Sender: FDA-Public Use
  Company Number: TR-TEVA-2023-TR-2866006

PATIENT
  Age: 57 Year
  Sex: Male

DRUGS (3)
  1. BORTEZOMIB [Suspect]
     Active Substance: BORTEZOMIB
     Indication: Plasma cell myeloma
     Dosage: 2.2MG ON DAYS 1, 4, 8 AND 11 AND RECEIVED SIX CYCLES
     Route: 058
  2. CYCLOPHOSPHAMIDE [Concomitant]
     Active Substance: CYCLOPHOSPHAMIDE
     Indication: Plasma cell myeloma
     Dosage: 1000MG ON DAY 1 AND RECEIVED SIX CYCLES
     Route: 042
  3. DEXAMETHASONE [Concomitant]
     Active Substance: DEXAMETHASONE
     Indication: Plasma cell myeloma
     Dosage: 40MG ON DAYS 1, 2, 3 4 AND RECEIVED SIX CYCLES
     Route: 042

REACTIONS (1)
  - Phrenic nerve paralysis [Unknown]
